FAERS Safety Report 9849492 (Version 1)
Quarter: 2014Q1

REPORT INFORMATION
  Report Type: Spontaneous
  Country: US (occurrence: None)
  Receive Date: 20140124
  Receipt Date: 20140124
  Transmission Date: 20141002
  Serious: Yes (Other)
  Sender: FDA-Public Use
  Company Number: None

PATIENT
  Age: 58 Year
  Sex: Female
  Weight: 79.83 kg

DRUGS (7)
  1. IBANDRONATE [Suspect]
     Indication: OSTEOPOROSIS
     Route: 048
     Dates: start: 20131108, end: 20131215
  2. ASA [Concomitant]
  3. PREVACID [Concomitant]
  4. VIT D [Concomitant]
  5. PRESERVISION VITAMIN [Concomitant]
  6. CALCIUM [Concomitant]
  7. OMEGA 3 [Concomitant]

REACTIONS (7)
  - Influenza like illness [None]
  - Chest pain [None]
  - Abdominal pain [None]
  - Gastrooesophageal reflux disease [None]
  - Bone pain [None]
  - Rash [None]
  - Rash [None]
